FAERS Safety Report 5096378-9 (Version None)
Quarter: 2006Q3

REPORT INFORMATION
  Report Type: 
  Country: None (occurrence: None)
  Receive Date: 20060830
  Receipt Date: 20060814
  Transmission Date: 20061208
  Serious: No
  Sender: FDA-Public Use
  Company Number: 2006RR-03447

PATIENT
  Age: 1 Year
  Sex: Male

DRUGS (3)
  1. AMOXICILLIN [Suspect]
     Indication: EAR INFECTION
     Dosage: 125 MG, TID, ORAL
     Route: 048
     Dates: start: 20060620, end: 20060627
  2. ACETAMINOPHEN [Concomitant]
  3. SUDOCREM [Concomitant]

REACTIONS (2)
  - HYPERSENSITIVITY [None]
  - RASH MACULAR [None]
